FAERS Safety Report 4433289-3 (Version None)
Quarter: 2004Q3

REPORT INFORMATION
  Report Type: 
  Country: None (occurrence: None)
  Receive Date: 20040826
  Receipt Date: 20040604
  Transmission Date: 20050211
  Serious: Yes (Other)
  Sender: FDA-Public Use
  Company Number: FR-BRISTOL-MYERS SQUIBB COMPANY-12606612

PATIENT
  Age: 58 Year
  Sex: Female
  Weight: 68 kg

DRUGS (3)
  1. APROVEL TABS 300 MG [Suspect]
     Dosage: 300 MG QD FROM SEP-02 TO 19-DEC-03,THEN 150 MG FROM 19-DEC-03 UNTIL STOPPED ON 11-JUN-04
     Route: 048
     Dates: start: 20020901, end: 20040611
  2. ESTRADIOL [Concomitant]
  3. LODOZ [Concomitant]
     Dates: start: 20011001

REACTIONS (4)
  - ALANINE AMINOTRANSFERASE INCREASED [None]
  - ASPARTATE AMINOTRANSFERASE INCREASED [None]
  - GAMMA-GLUTAMYLTRANSFERASE INCREASED [None]
  - TINNITUS [None]
